FAERS Safety Report 9311559 (Version 2)
Quarter: 2014Q1

REPORT INFORMATION
  Report Type: Spontaneous
  Country: CA (occurrence: CA)
  Receive Date: 20130528
  Receipt Date: 20140129
  Transmission Date: 20141002
  Serious: Yes (Life-Threatening, Hospitalization, Disabling, Other)
  Sender: FDA-Public Use
  Company Number: CA-PFIZER INC-2013142765

PATIENT
  Age: 66 Year
  Sex: Male
  Weight: 83.9 kg

DRUGS (6)
  1. SUTENT [Suspect]
     Indication: RENAL CELL CARCINOMA STAGE IV
     Dosage: 50 MG, 1X/DAY
     Route: 048
     Dates: start: 20121022, end: 20130402
  2. COUMADIN [Concomitant]
     Indication: ATRIAL FIBRILLATION
     Dosage: UNK
  3. BISOPROLOL [Concomitant]
     Indication: ATRIAL FIBRILLATION
     Dosage: 5 MG, 1X/DAY
     Route: 048
  4. METHYLPHENIDATE [Concomitant]
     Indication: FATIGUE
     Dosage: 20 MG, 1X/DAY
     Route: 048
  5. PANTOPRAZOLE [Concomitant]
     Indication: GASTROOESOPHAGEAL REFLUX DISEASE
     Dosage: 40 MG, 1X/DAY
     Route: 048
  6. ZOLEDRONIC ACID [Concomitant]
     Dosage: UNK

REACTIONS (5)
  - Necrotising fasciitis [Recovering/Resolving]
  - Septic shock [Unknown]
  - Renal failure [Unknown]
  - Fatigue [Unknown]
  - Anaemia macrocytic [Unknown]
